FAERS Safety Report 5595044-0 (Version None)
Quarter: 2008Q1

REPORT INFORMATION
  Report Type: 
  Country: None (occurrence: None)
  Receive Date: 20080117
  Receipt Date: 20080107
  Transmission Date: 20080703
  Serious: Yes (Life-Threatening)
  Sender: FDA-Public Use
  Company Number: GR-ROCHE-539972

PATIENT
  Age: 23 Year
  Sex: Female

DRUGS (10)
  1. DACLIZUMAB [Suspect]
     Indication: DRUG USE FOR UNKNOWN INDICATION
     Dosage: INDUCTION THERAPY.
     Route: 065
  2. HEPARIN [Suspect]
     Dosage: 1000 U OF UFH (UNFRACTIONED HEPARIN) ON THE 7TH PREOPERATIVE DAY.
     Route: 065
  3. HEPARIN [Suspect]
     Dosage: 1000 U OF UFH (UNFRACTIONED HEPARIN) ON THE SECOND PREOPERATIVE DAY.
     Route: 065
  4. HEPARIN [Suspect]
     Dosage: DURING TRANSPLANT SURGERY, RENAL GRAFT WAS WASHED OUT WITH HISTIDINE KETOGLUTARATE SOLUTION CONTAIN+
     Route: 065
  5. MYCOPHENOLATE MOFETIL [Suspect]
     Indication: DRUG USE FOR UNKNOWN INDICATION
     Dosage: INDUCTION THERAPY.
     Route: 065
  6. ENOXAPARIN SODIUM [Suspect]
     Dosage: GIVEN ON THE 6TH PREOPERATIVE DAY.
     Route: 065
  7. ENOXAPARIN SODIUM [Suspect]
     Dosage: GIVEN TWO DOSES OF 20 U ON THE FIRST POSTEXPLORATORY DAY.
     Route: 065
  8. NADROPARINE [Suspect]
     Indication: THROMBOSIS PROPHYLAXIS
     Dosage: GIVEN 2850 IU ANTI-XA NADROPARINE (LMWH) IN THE MORNING AND IN THE EVENING OF THE FIRST POSTOPERATI+
     Route: 058
  9. METHYLPREDNISOLONE [Concomitant]
     Dosage: INDUCTION THERAPY.
     Route: 040
  10. TACROLIMUS [Concomitant]
     Dosage: INDUCTION THERAPY.

REACTIONS (1)
  - HEPARIN-INDUCED THROMBOCYTOPENIA [None]
